FAERS Safety Report 17641464 (Version 1)
Quarter: 2020Q2

REPORT INFORMATION
  Report Type: Report from Study
  Country: IT (occurrence: IT)
  Receive Date: 20200408
  Receipt Date: 20200408
  Transmission Date: 20200713
  Serious: Yes (Hospitalization)
  Sender: FDA-Public Use
  Company Number: IT-TEVA-2020-IT-1220564

PATIENT
  Age: 70 Year
  Sex: Male
  Weight: 67 kg

DRUGS (7)
  1. ACIDO ZOLEDRONICO HIKMA [Concomitant]
     Active Substance: ZOLEDRONIC ACID
     Dosage: 4 MILLIGRAM
     Dates: start: 20200219
  2. ZOFRAN 8 MG/4 ML SOLUZIONE INIETTABILE [Concomitant]
     Dosage: 8 MILLIGRAM
     Dates: start: 20200128
  3. PLASIL [Concomitant]
     Active Substance: METOCLOPRAMIDE HYDROCHLORIDE
     Dates: start: 20200128
  4. LEVOPRAID? 50 MG/2 ML SOLUZIONE INIETTABILE PER USO I.M./E.V. [Concomitant]
     Dosage: 25 MILLIGRAM
     Dates: start: 20200128
  5. CARBOPLATINO TEVA 10 MG/ML [Suspect]
     Active Substance: CARBOPLATIN
     Indication: PROSTATE CANCER METASTATIC
     Dosage: 595.4  MILLIGRAM
     Route: 042
     Dates: start: 20200129, end: 20200219
  6. SOLDESAM [Concomitant]
     Active Substance: DEXAMETHASONE
     Dosage: 4 MILLIGRAM
     Route: 042
     Dates: start: 20200129
  7. ZARZIO 30 MU/0.5 ML SOLUTION FOR INJECTION OR INFUSION IN PRE-FILLED S [Concomitant]
     Active Substance: FILGRASTIM
     Indication: NEUTROPENIA
     Dosage: 5 UG/KG
     Dates: start: 20200220, end: 20200224

REACTIONS (3)
  - Asthenia [Recovering/Resolving]
  - Abdominal pain upper [Recovering/Resolving]
  - Decreased appetite [Recovering/Resolving]

NARRATIVE: CASE EVENT DATE: 20200225
